FAERS Safety Report 5855972-5 (Version None)
Quarter: 2008Q3

REPORT INFORMATION
  Report Type: 
  Country: None (occurrence: None)
  Receive Date: 20080825
  Receipt Date: 20080814
  Transmission Date: 20090109
  Serious: Yes (Other)
  Sender: FDA-Public Use
  Company Number: PH-NOVOPROD-278727

PATIENT
  Age: 42 Year
  Sex: Male
  Weight: 83 kg

DRUGS (3)
  1. LEVEMIR [Suspect]
     Dosage: 10 IU, QD
     Route: 058
     Dates: start: 20080606, end: 20080606
  2. GLICLAZIDE [Concomitant]
     Dosage: 60 MG, QD
     Route: 048
     Dates: start: 20071228
  3. PRIALTA [Concomitant]
     Dosage: 15/500
     Route: 048
     Dates: start: 20071228

REACTIONS (2)
  - DIZZINESS [None]
  - RASH [None]
